FAERS Safety Report 7326000-X (Version None)
Quarter: 2011Q1

REPORT INFORMATION
  Report Type: 
  Country: None (occurrence: None)
  Receive Date: 20110302
  Receipt Date: 20110218
  Transmission Date: 20110831
  Serious: Yes (Hospitalization)
  Sender: FDA-Public Use
  Company Number: IT-SANOFI-AVENTIS-2009SA006363

PATIENT
  Age: 78 Year
  Sex: Male

DRUGS (6)
  1. TRANDOLAPRIL [Concomitant]
     Route: 048
     Dates: start: 20050101
  2. CARBIDOPA/ENTACAPONE/LEVODOPA [Concomitant]
     Indication: PARKINSON'S DISEASE
     Route: 048
     Dates: start: 20060101
  3. LEUPROLIDE ACETATE [Suspect]
     Indication: PROSTATE CANCER
     Route: 058
     Dates: start: 20090914
  4. CASODEX [Suspect]
     Indication: PROSTATE CANCER
  5. CARBIDOPA AND LEVODOPA [Concomitant]
     Indication: PARKINSON'S DISEASE
     Route: 048
     Dates: start: 20060101
  6. AMLODIPINE [Concomitant]
     Route: 048
     Dates: start: 20050101

REACTIONS (2)
  - DUODENAL ULCER [None]
  - MELAENA [None]
